FAERS Safety Report 7109811 (Version 2)
Quarter: 2012Q4

REPORT INFORMATION
  Report Type: 
  Country: CA (occurrence: CA)
  Receive Date: 20090910
  Receipt Date: 20121107
  Transmission Date: 20130627
  Serious: Yes (Other)
  Sender: FDA-Public Use
  Company Number: PHHY2009CA37695

PATIENT
  Sex: Female

DRUGS (9)
  1. SANDOSTATIN LAR [Suspect]
     Indication: SHORT-BOWEL SYNDROME
     Dosage: 20 mg, every 4 weeks
     Route: 030
     Dates: start: 20051021
  2. ACTONEL [Concomitant]
  3. APO-FOLIC [Concomitant]
  4. ASAPHEN [Concomitant]
  5. B12-VITAMIIN [Concomitant]
  6. CALCIUM SUPPLEMENT [Concomitant]
  7. LOMOTIL [Concomitant]
  8. MAGNESIUM [Concomitant]
  9. PREVACID [Concomitant]

REACTIONS (10)
  - Hypotension [Unknown]
  - Muscle disorder [Unknown]
  - Blood pressure increased [Unknown]
  - Hyperglycaemia [Unknown]
  - Bradycardia [Unknown]
  - Flatulence [Unknown]
  - Abdominal pain [Unknown]
  - Diarrhoea [Unknown]
  - Heart rate increased [Unknown]
  - Dizziness [Unknown]
